FAERS Safety Report 7917601-6 (Version None)
Quarter: 2011Q4

REPORT INFORMATION
  Report Type: 
  Country: None (occurrence: None)
  Receive Date: 20111116
  Receipt Date: 20111102
  Transmission Date: 20120403
  Serious: Yes (Death)
  Sender: FDA-Public Use
  Company Number: US-BAYER-201039005NA

PATIENT
  Age: 41 Year
  Sex: Female
  Weight: 101 kg

DRUGS (4)
  1. YASMIN [Suspect]
     Indication: MENSTRUAL DISORDER
  2. MEDROXYPROGESTERONE [Concomitant]
     Dosage: 10 MG, UNK
     Route: 048
     Dates: start: 20070206
  3. LEVOXYL [Concomitant]
     Route: 048
  4. YASMIN [Suspect]
     Indication: CONTRACEPTION
     Route: 048
     Dates: start: 20060713, end: 20070305

REACTIONS (1)
  - PULMONARY EMBOLISM [None]
